FAERS Safety Report 6584931-2 (Version None)
Quarter: 2010Q1

REPORT INFORMATION
  Report Type: 
  Country: None (occurrence: None)
  Receive Date: 20100204
  Receipt Date: 20100122
  Transmission Date: 20100710
  Serious: Yes (Other)
  Sender: FDA-Public Use
  Company Number: 230786J10USA

PATIENT
  Age: 40 Year
  Sex: Female

DRUGS (1)
  1. REBIF [Suspect]
     Indication: MULTIPLE SCLEROSIS
     Dosage: 44 MCG, 3 IN 1 WEEKS, SUBCUTANEOUS
     Route: 058
     Dates: start: 20090611

REACTIONS (5)
  - DYSKINESIA [None]
  - GASTROINTESTINAL DISORDER [None]
  - MULTIPLE SCLEROSIS [None]
  - OPTIC NEURITIS [None]
  - WHITE BLOOD CELL COUNT DECREASED [None]
